FAERS Safety Report 8288265-X (Version None)
Quarter: 2012Q2

REPORT INFORMATION
  Report Type: 
  Country: None (occurrence: None)
  Receive Date: 20120416
  Receipt Date: 20110510
  Transmission Date: 20120825
  Serious: No
  Sender: FDA-Public Use
  Company Number: US-SANOFI-AVENTIS-2011SA030240

PATIENT
  Sex: Female

DRUGS (1)
  1. CLOMID [Suspect]
     Indication: INFERTILITY
     Dosage: THERAPY TAKEN OVER A TWO YEAR PERIOD. ONE TABLET DAILY FOR 5 DAYS, EVERY CYCLE.
     Route: 048

REACTIONS (1)
  - ANOVULATORY CYCLE [None]
